FAERS Safety Report 23187030 (Version 1)
Quarter: 2023Q4

REPORT INFORMATION
  Report Type: Spontaneous
  Country: US (occurrence: None)
  Receive Date: 20231115
  Receipt Date: 20231115
  Transmission Date: 20240109
  Serious: Yes (Hospitalization)
  Sender: FDA-Public Use
  Company Number: None

PATIENT
  Age: 65 Year
  Sex: Female
  Weight: 94.5 kg

DRUGS (1)
  1. CEFEPIME [Suspect]
     Active Substance: CEFEPIME HYDROCHLORIDE

REACTIONS (5)
  - Blood pressure decreased [None]
  - Oxygen saturation decreased [None]
  - Catatonia [None]
  - Unresponsive to stimuli [None]
  - Neurotoxicity [None]

NARRATIVE: CASE EVENT DATE: 20231113
